FAERS Safety Report 16683937 (Version 2)
Quarter: 2019Q3

REPORT INFORMATION
  Report Type: Spontaneous
  Country: IT (occurrence: IT)
  Receive Date: 20190808
  Receipt Date: 20190913
  Transmission Date: 20191004
  Serious: Yes (Hospitalization, Other)
  Sender: FDA-Public Use
  Company Number: IT-MYLANLABS-2019M1073977

PATIENT
  Age: 75 Year
  Sex: Female
  Weight: 72 kg

DRUGS (3)
  1. LETROZOLE. [Suspect]
     Active Substance: LETROZOLE
     Indication: BREAST CANCER
     Dosage: 2.5 MG, QD
     Route: 048
     Dates: start: 20180528, end: 20190225
  2. LOPERAMIDE [Concomitant]
     Active Substance: LOPERAMIDE
     Indication: PROPHYLAXIS
     Dosage: UNK
     Route: 065
     Dates: start: 20180528
  3. ABEMACICLIB [Suspect]
     Active Substance: ABEMACICLIB
     Indication: BREAST CANCER
     Dosage: 150 MG, BID
     Route: 048
     Dates: start: 20180528, end: 20190225

REACTIONS (9)
  - Pleural effusion [Unknown]
  - Peripheral swelling [Recovered/Resolved]
  - Dyspnoea [Recovered/Resolved]
  - Cough [Unknown]
  - Pericardial effusion [Unknown]
  - Cardiac failure [Not Recovered/Not Resolved]
  - Hypokalaemia [Unknown]
  - Atrial fibrillation [Not Recovered/Not Resolved]
  - Hyperuricaemia [Unknown]

NARRATIVE: CASE EVENT DATE: 20190221
